FAERS Safety Report 14317778 (Version 1)
Quarter: 2017Q4

REPORT INFORMATION
  Report Type: Spontaneous
  Country: US (occurrence: US)
  Receive Date: 20171221
  Receipt Date: 20171221
  Transmission Date: 20180321
  Serious: Yes (Life-Threatening)
  Sender: FDA-Public Use
  Company Number: None

PATIENT
  Age: 54 Year
  Sex: Male
  Weight: 147 kg

DRUGS (1)
  1. KEYTRUDA [Suspect]
     Active Substance: PEMBROLIZUMAB
     Indication: NON-SMALL CELL LUNG CANCER METASTATIC
     Dosage: ?          OTHER FREQUENCY:EVERY 3 WEEKS;?
     Route: 041
     Dates: start: 20171005, end: 20171207

REACTIONS (4)
  - Dyskinesia [None]
  - Depressed level of consciousness [None]
  - Somnolence [None]
  - Neck pain [None]

NARRATIVE: CASE EVENT DATE: 20171214
